FAERS Safety Report 8552813-2 (Version None)
Quarter: 2012Q3

REPORT INFORMATION
  Report Type: 
  Country: None (occurrence: None)
  Receive Date: 20120731
  Receipt Date: 20120726
  Transmission Date: 20120928
  Serious: Yes (Hospitalization, Other)
  Sender: FDA-Public Use
  Company Number: PHHY2012JP015064

PATIENT
  Age: 59 Year
  Sex: Male

DRUGS (2)
  1. IMATINIB MESYLATE [Suspect]
     Indication: GASTROINTESTINAL STROMAL TUMOUR
     Dosage: 400 MG, DAILY
     Route: 048
     Dates: start: 20101101
  2. PREDNISOLONE [Concomitant]
     Indication: COLITIS ULCERATIVE
     Dosage: 6 MG, UNK
     Route: 048

REACTIONS (3)
  - CYTOMEGALOVIRUS COLITIS [None]
  - CYTOMEGALOVIRUS OESOPHAGITIS [None]
  - COLITIS ULCERATIVE [None]
